FAERS Safety Report 5125651-0 (Version None)
Quarter: 2006Q4

REPORT INFORMATION
  Report Type: 
  Country: None (occurrence: None)
  Receive Date: 20061010
  Receipt Date: 20061010
  Transmission Date: 20070319
  Serious: Yes (Death)
  Sender: FDA-Public Use
  Company Number: None

PATIENT
  Age: 24 Year
  Sex: Female
  Weight: 149.687 kg

DRUGS (1)
  1. METHADONE 10MG [Suspect]
     Indication: DRUG WITHDRAWAL SYNDROME
     Dosage: 20MG - 2 TABLETS  2X DAY - BY MOUTH   OCCLUSIVE
     Route: 048
     Dates: start: 20041124, end: 20041202

REACTIONS (2)
  - BRONCHITIS ACUTE [None]
  - DRUG PRESCRIBING ERROR [None]
